FAERS Safety Report 12841650 (Version 6)
Quarter: 2018Q4

REPORT INFORMATION
  Report Type: Spontaneous
  Country: CA (occurrence: CA)
  Receive Date: 20161012
  Receipt Date: 20181210
  Transmission Date: 20190204
  Serious: Yes (Other)
  Sender: FDA-Public Use
  Company Number: CA-PFIZER INC-2016466671

PATIENT
  Age: 67 Year
  Sex: Female

DRUGS (4)
  1. TRAZODONE [Concomitant]
     Active Substance: TRAZODONE HYDROCHLORIDE
     Dosage: UNK
  2. FOLVITE [FOLIC ACID] [Concomitant]
     Dosage: UNK
  3. METHOTREXATE SODIUM. [Suspect]
     Active Substance: METHOTREXATE SODIUM
     Indication: RHEUMATOID ARTHRITIS
     Dosage: UNK
     Dates: start: 200403, end: 201606
  4. NOVO-GESIC [Concomitant]
     Dosage: UNK

REACTIONS (5)
  - Neutropenia [Unknown]
  - Nail infection [Unknown]
  - Monocytosis [Unknown]
  - Infection [Unknown]
  - Nausea [Unknown]

NARRATIVE: CASE EVENT DATE: 2016
